FAERS Safety Report 4698357-X (Version None)
Quarter: 2005Q2

REPORT INFORMATION
  Report Type: 
  Country: None (occurrence: None)
  Receive Date: 20050621
  Receipt Date: 20050610
  Transmission Date: 20051028
  Serious: Yes (Hospitalization, Other)
  Sender: FDA-Public Use
  Company Number: 2005084458

PATIENT
  Age: 29 Year
  Sex: Female

DRUGS (1)
  1. DEPO-PROVERA [Suspect]
     Indication: CONTRACEPTION
     Dosage: INTRAMUSCULAR
     Route: 030
     Dates: start: 20010615, end: 20010615

REACTIONS (8)
  - DEPRESSION [None]
  - FLATULENCE [None]
  - MALAISE [None]
  - MENINGISM [None]
  - NAUSEA [None]
  - PHOTOPHOBIA [None]
  - VERTIGO [None]
  - VOMITING [None]
